FAERS Safety Report 7515563-7 (Version None)
Quarter: 2011Q2

REPORT INFORMATION
  Report Type: 
  Country: None (occurrence: None)
  Receive Date: 20110601
  Receipt Date: 20100712
  Transmission Date: 20111010
  Serious: Yes (Hospitalization, Other)
  Sender: FDA-Public Use
  Company Number: US-PFIZER INC-2009316425

PATIENT
  Sex: Female

DRUGS (6)
  1. NARDIL [Concomitant]
     Indication: MIGRAINE
     Dosage: UNK
     Dates: start: 20050101, end: 20081001
  2. ATENOLOL [Concomitant]
     Indication: MIGRAINE
     Dosage: UNK
     Dates: start: 20050101
  3. CHANTIX [Suspect]
     Indication: SMOKING CESSATION THERAPY
     Dosage: 0.5/1 MG, UNK
     Route: 048
     Dates: start: 20070917, end: 20071202
  4. NORFLEX [Concomitant]
     Indication: MIGRAINE
     Dosage: UNK
     Dates: start: 20000101
  5. CLONAZEPAM [Concomitant]
     Indication: ANXIETY
     Dosage: UNK
     Dates: start: 20020101
  6. TORADOL [Concomitant]
     Indication: MIGRAINE
     Dosage: UNK
     Dates: start: 20050101

REACTIONS (4)
  - ANXIETY [None]
  - SUICIDE ATTEMPT [None]
  - AMNESIA [None]
  - DEPRESSION [None]
